FAERS Safety Report 16735873 (Version 3)
Quarter: 2019Q3

REPORT INFORMATION
  Report Type: Spontaneous
  Country: US (occurrence: US)
  Receive Date: 20190823
  Receipt Date: 20190927
  Transmission Date: 20191005
  Serious: No
  Sender: FDA-Public Use
  Company Number: US-PFIZER INC-2019362560

PATIENT
  Age: 33 Year
  Sex: Male

DRUGS (1)
  1. LYRICA CR [Suspect]
     Active Substance: PREGABALIN
     Indication: TRIGEMINAL NEURALGIA
     Dosage: UNK

REACTIONS (1)
  - Therapeutic product effect incomplete [Unknown]
